FAERS Safety Report 8465185-9 (Version None)
Quarter: 2012Q2

REPORT INFORMATION
  Report Type: 
  Country: None (occurrence: None)
  Receive Date: 20120626
  Receipt Date: 20120619
  Transmission Date: 20120825
  Serious: Yes (Disabling, Other)
  Sender: FDA-Public Use
  Company Number: US-JNJFOC-20120106867

PATIENT
  Sex: Female
  Weight: 53.52 kg

DRUGS (6)
  1. STELARA [Suspect]
     Indication: PSORIASIS
     Dosage: 4XYEAR
     Route: 058
     Dates: start: 20100101, end: 20110701
  2. ALBUTEROL [Concomitant]
     Indication: ASTHMA
     Route: 065
  3. NEURONTIN [Concomitant]
     Indication: RESTLESS LEGS SYNDROME
     Route: 065
  4. DOXEPIN [Concomitant]
     Indication: DEPRESSION
     Route: 065
  5. ZOLOFT [Concomitant]
     Indication: DEPRESSION
     Route: 065
  6. ESTRADIOL [Concomitant]
     Indication: HORMONE REPLACEMENT THERAPY
     Route: 065

REACTIONS (3)
  - ROAD TRAFFIC ACCIDENT [None]
  - RASH [None]
  - DRUG DOSE OMISSION [None]
